FAERS Safety Report 8246793-7 (Version None)
Quarter: 2012Q1

REPORT INFORMATION
  Report Type: 
  Country: None (occurrence: None)
  Receive Date: 20120330
  Receipt Date: 20120322
  Transmission Date: 20120608
  Serious: Yes (Other)
  Sender: FDA-Public Use
  Company Number: US-PFIZER INC-2012064510

PATIENT
  Sex: Female

DRUGS (15)
  1. BONIVA [Concomitant]
     Dosage: 150 MG,EVERY 30 DAYS
     Route: 048
  2. CELEXA [Concomitant]
     Dosage: 40 MG, 1 TABLET DAILY
     Route: 048
  3. CYMBALTA [Concomitant]
     Dosage: 30 MG, 1 CAPSULE DAILY
     Route: 048
  4. ULTRAM [Concomitant]
     Dosage: 50 MG,2 TABLETS, 3 TIMES DAILY
     Route: 048
  5. DESYREL [Concomitant]
     Dosage: 50 MG,1 TABLET NIGHTLY
     Route: 048
  6. LOPRESSOR [Concomitant]
     Dosage: 50 MG, 1 TAB DAILY
     Route: 048
  7. NEURONTIN [Suspect]
     Dosage: 300 MG, 3 TIMES DAILY
     Route: 048
  8. MEVACOR [Concomitant]
     Dosage: 10 MG, 1 TABLET NIGHTLY
     Route: 048
  9. VITAMIN D [Concomitant]
     Dosage: 2000 UNIT TABLET, DAILY
     Route: 048
  10. DETROL LA [Suspect]
     Dosage: 4 MG 24 HR CAPSULE, 1 CAPSULE DAILY
     Route: 048
  11. FLEXERIL [Concomitant]
     Dosage: 10 MG, AS NEEDED
     Route: 048
  12. CRESTOR [Concomitant]
     Dosage: 10 MG, 1 TABLET EVERY EVENING
     Route: 048
  13. CYANOCOBALAMIN [Concomitant]
     Dosage: 1000 UG/ML
  14. TOPROL-XL [Concomitant]
     Dosage: 50 MG, 24 HR TABLET
  15. VITAMIN D [Concomitant]
     Dosage: 50000 UNIT CAPSULE

REACTIONS (13)
  - HYPERTONIC BLADDER [None]
  - DEPRESSION [None]
  - BLOOD CHOLESTEROL INCREASED [None]
  - ARTHRALGIA [None]
  - ANXIETY DISORDER [None]
  - ESSENTIAL HYPERTENSION [None]
  - VITAMIN D DEFICIENCY [None]
  - VITAMIN B12 DEFICIENCY [None]
  - NEUROPATHY PERIPHERAL [None]
  - BACK PAIN [None]
  - FIBROMYALGIA [None]
  - INSOMNIA [None]
  - NECK PAIN [None]
